FAERS Safety Report 8133565-7 (Version None)
Quarter: 2012Q1

REPORT INFORMATION
  Report Type: 
  Country: None (occurrence: None)
  Receive Date: 20120213
  Receipt Date: 20120202
  Transmission Date: 20120608
  Serious: Yes (Hospitalization)
  Sender: FDA-Public Use
  Company Number: BR-MEDIMMUNE-MEDI-0013191

PATIENT
  Sex: Male
  Weight: 7.78 kg

DRUGS (3)
  1. SYNAGIS [Suspect]
     Indication: BRONCHOPULMONARY DYSPLASIA
     Route: 030
     Dates: start: 20100501, end: 20100701
  2. SYNAGIS [Suspect]
  3. SINGULAIR BABY [Concomitant]

REACTIONS (10)
  - OXYGEN SATURATION DECREASED [None]
  - BRONCHIOLITIS [None]
  - INFLUENZA [None]
  - FATIGUE [None]
  - SNEEZING [None]
  - PYREXIA [None]
  - CRYSTAL URINE [None]
  - COUGH [None]
  - NASOPHARYNGITIS [None]
  - PO2 DECREASED [None]
